FAERS Safety Report 5145990-7 (Version None)
Quarter: 2006Q4

REPORT INFORMATION
  Report Type: 
  Country: None (occurrence: None)
  Receive Date: 20061108
  Receipt Date: 20061102
  Transmission Date: 20070319
  Serious: Yes (Other)
  Sender: FDA-Public Use
  Company Number: GB-AVENTIS-200621399GDDC

PATIENT
  Sex: Female

DRUGS (1)
  1. LANTUS [Suspect]
     Indication: DIABETES MELLITUS NON-INSULIN-DEPENDENT
     Dosage: DOSE: 35-45

REACTIONS (1)
  - BREAST CANCER FEMALE [None]
